FAERS Safety Report 7433740-0 (Version None)
Quarter: 2011Q2

REPORT INFORMATION
  Report Type: 
  Country: None (occurrence: None)
  Receive Date: 20110424
  Receipt Date: 20110419
  Transmission Date: 20111010
  Serious: No
  Sender: FDA-Public Use
  Company Number: US-B.I. PHARMACEUTICALS,INC./RIDGEFIELD-2011-BP-03042BP

PATIENT
  Sex: Female
  Weight: 50.3 kg

DRUGS (4)
  1. PRADAXA [Suspect]
     Indication: ATRIAL FIBRILLATION
     Dates: start: 20101116, end: 20110121
  2. DILTIAZEM HCL [Concomitant]
     Dosage: 180 MG
     Dates: start: 20091022
  3. DIGOXIN [Concomitant]
     Dosage: 0.125 MG
     Dates: start: 20100510
  4. PERCOCET [Concomitant]
     Indication: PAIN
     Dates: start: 20100727

REACTIONS (2)
  - BLOOD URINE PRESENT [None]
  - ADVERSE REACTION [None]
